FAERS Safety Report 4989687-2 (Version None)
Quarter: 2006Q2

REPORT INFORMATION
  Report Type: 
  Country: None (occurrence: None)
  Receive Date: 20060501
  Receipt Date: 20060425
  Transmission Date: 20061013
  Serious: Yes (Death)
  Sender: FDA-Public Use
  Company Number: 163-21880-06030246

PATIENT
  Age: 55 Year
  Sex: Male

DRUGS (3)
  1. REVLIMID [Suspect]
     Indication: MYELODYSPLASTIC SYNDROME
     Dosage: 10 MG, DAILY, ORAL
     Route: 048
     Dates: start: 20060304, end: 20060317
  2. ANTIBIOTICS (ANTIBIOTICS) [Concomitant]
  3. GLIPIZIDE [Concomitant]

REACTIONS (2)
  - RASH [None]
  - SEPSIS [None]
